FAERS Safety Report 16525180 (Version 4)
Quarter: 2019Q4

REPORT INFORMATION
  Report Type: Report from Study
  Country: US (occurrence: US)
  Receive Date: 20190703
  Receipt Date: 20191209
  Transmission Date: 20200122
  Serious: No
  Sender: FDA-Public Use
  Company Number: PHEH2019US027550

PATIENT
  Age: 14 Year
  Sex: Male
  Weight: 39.91 kg

DRUGS (1)
  1. GILENYA [Suspect]
     Active Substance: FINGOLIMOD HYDROCHLORIDE
     Indication: MULTIPLE SCLEROSIS
     Dosage: 0.25 MG, QD
     Route: 048
     Dates: start: 20190505

REACTIONS (5)
  - Pyrexia [Unknown]
  - Lymphocyte count decreased [Recovering/Resolving]
  - Arthralgia [Unknown]
  - White blood cell count decreased [Recovering/Resolving]
  - Oropharyngeal pain [Unknown]

NARRATIVE: CASE EVENT DATE: 201906
